FAERS Safety Report 8681751 (Version 8)
Quarter: 2014Q1

REPORT INFORMATION
  Report Type: Spontaneous
  Country: US (occurrence: US)
  Receive Date: 20120725
  Receipt Date: 20140214
  Transmission Date: 20141002
  Serious: Yes (Other)
  Sender: FDA-Public Use
  Company Number: US-JNJFOC-20120709535

PATIENT
  Age: 42 Year
  Sex: Female
  Weight: 85.73 kg

DRUGS (5)
  1. TYLENOL [Suspect]
     Route: 065
  2. TYLENOL [Suspect]
     Indication: UPPER RESPIRATORY TRACT INFECTION
     Route: 065
  3. THERAFLU [Suspect]
     Indication: UPPER RESPIRATORY TRACT INFECTION
     Route: 065
  4. NYQUIL [Suspect]
     Indication: UPPER RESPIRATORY TRACT INFECTION
     Route: 065
  5. ETHANOL [Suspect]
     Indication: PRODUCT USED FOR UNKNOWN INDICATION
     Route: 048

REACTIONS (8)
  - Renal failure acute [Recovering/Resolving]
  - Cholecystitis [Unknown]
  - Posterior reversible encephalopathy syndrome [Unknown]
  - Coagulopathy [Unknown]
  - Acute hepatic failure [Recovering/Resolving]
  - Hallucination [Unknown]
  - Overdose [Unknown]
  - Visual acuity reduced [Unknown]
